FAERS Safety Report 7866541-X (Version None)
Quarter: 2011Q4

REPORT INFORMATION
  Report Type: 
  Country: None (occurrence: None)
  Receive Date: 20111028
  Receipt Date: 20110701
  Transmission Date: 20120403
  Serious: No
  Sender: FDA-Public Use
  Company Number: US-GLAXOSMITHKLINE-A0934782A

PATIENT
  Age: 68 Year
  Sex: Female

DRUGS (10)
  1. ADVAIR DISKUS 100/50 [Suspect]
     Indication: CHRONIC OBSTRUCTIVE PULMONARY DISEASE
     Dosage: 1PUFF TWICE PER DAY
     Route: 055
     Dates: start: 20090101
  2. TOPIRAMATE [Concomitant]
  3. ALBUTEROL [Concomitant]
  4. GLYBURIDE [Concomitant]
  5. METFORMIN HCL [Concomitant]
  6. SIMVASTATIN [Concomitant]
  7. ASPIRIN [Concomitant]
  8. DOXYCYCLINE [Concomitant]
  9. UNKNOWN MEDICATION [Concomitant]
  10. OMEPRAZOLE [Concomitant]

REACTIONS (5)
  - AGEUSIA [None]
  - CANDIDIASIS [None]
  - OROPHARYNGEAL PAIN [None]
  - DYSPHONIA [None]
  - OROPHARYNGEAL CANDIDIASIS [None]
